FAERS Safety Report 25731068 (Version 1)
Quarter: 2025Q3

REPORT INFORMATION
  Report Type: Spontaneous
  Country: US (occurrence: None)
  Receive Date: 20250826
  Receipt Date: 20250826
  Transmission Date: 20251020
  Serious: Yes (Hospitalization)
  Sender: FDA-CTU
  Company Number: None

PATIENT
  Age: 35 Year
  Sex: Male
  Weight: 114 kg

DRUGS (2)
  1. CLOZAPINE [Suspect]
     Active Substance: CLOZAPINE
     Indication: Schizoaffective disorder
     Dosage: FREQUENCY : DAILY;?
     Route: 048
     Dates: start: 20250511, end: 20250519
  2. CLOZAPINE [Suspect]
     Active Substance: CLOZAPINE
     Indication: Schizoaffective disorder
     Dosage: FREQUENCY : AT BEDTIME;?
     Route: 048
     Dates: start: 20250519, end: 20250520

REACTIONS (11)
  - Drooling [None]
  - Unresponsive to stimuli [None]
  - Urinary incontinence [None]
  - Anal incontinence [None]
  - Posture abnormal [None]
  - Muscle rigidity [None]
  - Pneumonia [None]
  - Troponin increased [None]
  - Malaise [None]
  - Hypotension [None]
  - Myopericarditis [None]

NARRATIVE: CASE EVENT DATE: 20250519
